FAERS Safety Report 11340892 (Version 2)
Quarter: 2015Q4

REPORT INFORMATION
  Report Type: Spontaneous
  Country: US (occurrence: US)
  Receive Date: 20150805
  Receipt Date: 20151123
  Transmission Date: 20160304
  Serious: Yes (Hospitalization, Other)
  Sender: FDA-Public Use
  Company Number: US-BAYER-2015-393091

PATIENT
  Age: 29 Year
  Sex: Female
  Weight: 106.58 kg

DRUGS (3)
  1. CELEXA [Concomitant]
     Active Substance: CITALOPRAM HYDROBROMIDE
     Indication: ANXIETY
     Dosage: UNK
     Dates: start: 200805, end: 200905
  2. PRENATAL VITAMINS [Concomitant]
     Active Substance: VITAMINS
     Indication: PRENATAL CARE
     Dosage: UNK
     Dates: start: 200704, end: 200711
  3. MIRENA [Suspect]
     Active Substance: LEVONORGESTREL
     Indication: CONTRACEPTION
     Dosage: 20 MCG/24HR, CONT
     Route: 015
     Dates: start: 20071217, end: 20110912

REACTIONS (11)
  - Uterine perforation [None]
  - Abdominal pain [None]
  - Drug ineffective [None]
  - Anxiety [None]
  - Device failure [None]
  - Injury [None]
  - Emotional distress [None]
  - Device use error [None]
  - Pregnancy with contraceptive device [None]
  - Stress [None]
  - Depression [None]

NARRATIVE: CASE EVENT DATE: 20110912
